FAERS Safety Report 13625459 (Version 1)
Quarter: 2017Q2

REPORT INFORMATION
  Report Type: Spontaneous
  Country: US (occurrence: US)
  Receive Date: 20170607
  Receipt Date: 20170607
  Transmission Date: 20170830
  Serious: No
  Sender: FDA-Public Use
  Company Number: US-WOCKHARDT USA, LLC-2021626

PATIENT
  Age: 18 Year
  Sex: Female

DRUGS (1)
  1. REACT [Suspect]
     Active Substance: LEVONORGESTREL
     Route: 048
     Dates: start: 20161107, end: 20161107

REACTIONS (1)
  - Vaginal haemorrhage [Unknown]
